FAERS Safety Report 5585781-6 (Version None)
Quarter: 2008Q1

REPORT INFORMATION
  Report Type: 
  Country: None (occurrence: None)
  Receive Date: 20080109
  Receipt Date: 20080108
  Transmission Date: 20080703
  Serious: Yes (Life-Threatening, Hospitalization)
  Sender: FDA-Public Use
  Company Number: US-BRISTOL-MYERS SQUIBB COMPANY-14015705

PATIENT
  Age: 56 Year
  Sex: Male
  Weight: 79 kg

DRUGS (8)
  1. CETUXIMAB [Suspect]
     Indication: SQUAMOUS CELL CARCINOMA
     Dates: start: 20071123, end: 20071123
  2. CISPLATIN [Suspect]
     Indication: SQUAMOUS CELL CARCINOMA
     Dosage: 1 DOSAGE FORM = 100 (NO UNITS).
     Dates: start: 20071123, end: 20071123
  3. TAXOTERE [Suspect]
     Indication: SQUAMOUS CELL CARCINOMA
     Dosage: 1 DOSAGE FORM = 75 (NO UNITS).
     Dates: start: 20071123, end: 20071123
  4. FLUOROURACIL [Suspect]
     Indication: SQUAMOUS CELL CARCINOMA
     Dosage: 5-FU DOSE WAS REDUCED ACCORDING TO PROTOCOL FOR CYCLE 2
     Dates: start: 20071123, end: 20071123
  5. NEXIUM [Concomitant]
  6. ATIVAN [Concomitant]
  7. ADDERALL 10 [Concomitant]
  8. IMODIUM [Concomitant]

REACTIONS (1)
  - GASTROINTESTINAL HAEMORRHAGE [None]
